FAERS Safety Report 4334350-4 (Version None)
Quarter: 2004Q2

REPORT INFORMATION
  Report Type: 
  Country: None (occurrence: None)
  Receive Date: 20040405
  Receipt Date: 20040322
  Transmission Date: 20050107
  Serious: Yes (Hospitalization, Other)
  Sender: FDA-Public Use
  Company Number: HQWYE014522MAR04

PATIENT
  Age: 28 Year
  Sex: Female

DRUGS (2)
  1. ANGE-21 (LEVONORGESTREL/ETHINYL ESTRADIOL, TABLET) [Suspect]
     Indication: CONTRACEPTION
     Dosage: 1 TABLET DAILY ORAL
     Route: 048
     Dates: start: 20030201
  2. CEFTRIAXONE [Concomitant]

REACTIONS (1)
  - RENAL FAILURE ACUTE [None]
